FAERS Safety Report 4917286-7 (Version None)
Quarter: 2006Q1

REPORT INFORMATION
  Report Type: 
  Country: None (occurrence: None)
  Receive Date: 20060221
  Receipt Date: 20060214
  Transmission Date: 20060701
  Serious: Yes (Hospitalization)
  Sender: FDA-Public Use
  Company Number: JP-AVENTIS-200610512JP

PATIENT
  Age: 65 Year

DRUGS (4)
  1. ALLEGRA [Suspect]
     Indication: PRURITUS
     Route: 048
     Dates: start: 20060201, end: 20060207
  2. DIART [Suspect]
     Indication: OEDEMA PERIPHERAL
     Dates: start: 20060201, end: 20060207
  3. ALEXAN [Suspect]
     Indication: OEDEMA PERIPHERAL
     Dates: start: 20060201, end: 20060207
  4. UNKNOWN DRUG [Concomitant]

REACTIONS (1)
  - HAEMOLYTIC ANAEMIA [None]
